FAERS Safety Report 5130083-5 (Version None)
Quarter: 2006Q4

REPORT INFORMATION
  Report Type: 
  Country: None (occurrence: None)
  Receive Date: 20061012
  Receipt Date: 20060929
  Transmission Date: 20070319
  Serious: Yes (Hospitalization)
  Sender: FDA-Public Use
  Company Number: 6026178

PATIENT
  Age: 84 Year
  Sex: Female

DRUGS (9)
  1. LEVOTHYROXINE SODIUM [Suspect]
     Indication: HYPOTHYROIDISM
     Dosage: 150 MCG (150 MCG, 1 D) ORAL
     Route: 048
  2. PREVISCAN (TABLET) (FLUINDIONE) [Suspect]
     Indication: DRUG USE FOR UNKNOWN INDICATION
     Dosage: 0,5 DOSAGE FORMS (0,5 DOSAGE FORMS, CYCLICAL) ORAL
     Route: 048
  3. SOLUPRED (TABLET) (PREDNISOLONE SODIUM SULFOBENZOATE) [Suspect]
     Indication: DRUG USE FOR UNKNOWN INDICATION
     Dosage: 40 MG (40 MG, 1 D) ORAL
     Route: 048
     Dates: start: 20060908, end: 20060914
  4. ORELOX (TABLET) (CEFPODOXIME PROXETIL) [Suspect]
     Indication: DRUG USE FOR UNKNOWN INDICATION
     Dosage: 200 MG (200 MG, 1 D) ORAL
     Route: 048
     Dates: start: 20060908, end: 20060914
  5. FUROSEMIDE [Concomitant]
  6. HEMIGOXINE NATIVELLE (TABLET) (DIGOXIN) [Concomitant]
  7. LERCAN (TABLET) (LERCANIDIPINE HYDROCHLORIDE) [Concomitant]
  8. BISOPROLOL FUMARATE [Concomitant]
  9. BROMAZEPAM (BROMAZEPAM) [Concomitant]

REACTIONS (4)
  - COAGULATION TIME PROLONGED [None]
  - DRUG INTERACTION [None]
  - EPISTAXIS [None]
  - INTERNATIONAL NORMALISED RATIO INCREASED [None]
